FAERS Safety Report 21887493 (Version 1)
Quarter: 2023Q1

REPORT INFORMATION
  Report Type: Spontaneous
  Country: US (occurrence: US)
  Receive Date: 20230120
  Receipt Date: 20230120
  Transmission Date: 20230418
  Serious: No
  Sender: FDA-Public Use
  Company Number: US-BEH-2023154227

PATIENT
  Sex: Female

DRUGS (18)
  1. HAEGARDA [Suspect]
     Active Substance: HUMAN C1-ESTERASE INHIBITOR
     Indication: Hereditary angioedema
     Dosage: 4000 INTERNATIONAL UNIT, BIW (7000 INTERNATION UNITS TOTAL)
     Route: 058
     Dates: start: 20190226
  2. HAEGARDA [Suspect]
     Active Substance: HUMAN C1-ESTERASE INHIBITOR
     Indication: Prophylaxis
  3. HAEGARDA [Suspect]
     Active Substance: HUMAN C1-ESTERASE INHIBITOR
     Indication: Hereditary angioedema
     Dosage: 3000 INTERNATIONAL UNIT, BIW (7000 INTERNATION UNITS TOTAL)
     Route: 058
     Dates: start: 20190226
  4. HAEGARDA [Suspect]
     Active Substance: HUMAN C1-ESTERASE INHIBITOR
     Indication: Prophylaxis
  5. JANSSEN COVID-19 VACCINE [Concomitant]
     Active Substance: AD26.COV2.S
  6. ARIPIPRAZOLE [Concomitant]
     Active Substance: ARIPIPRAZOLE
     Dosage: 2 MILLIGRAM
  7. HYDROCODONE [Concomitant]
     Active Substance: HYDROCODONE
  8. TEGRETOL [Concomitant]
     Active Substance: CARBAMAZEPINE
  9. CEPHALEXIN [Concomitant]
     Active Substance: CEPHALEXIN
  10. HYDROCHLOROTHIAZIDE [Concomitant]
     Active Substance: HYDROCHLOROTHIAZIDE
  11. CARBAMAZEPINE [Concomitant]
     Active Substance: CARBAMAZEPINE
  12. EPINEPHRINE [Concomitant]
     Active Substance: EPINEPHRINE
  13. EPITOL [Concomitant]
     Active Substance: CARBAMAZEPINE
  14. FIRAZYR [Concomitant]
     Active Substance: ICATIBANT ACETATE
  15. LIDOCAINE\PRILOCAINE [Concomitant]
     Active Substance: LIDOCAINE\PRILOCAINE
  16. RANITIDINE HYDROCHLORIDE [Concomitant]
     Active Substance: RANITIDINE HYDROCHLORIDE
  17. VENTOLIN HFA [Concomitant]
     Active Substance: ALBUTEROL SULFATE
  18. XARELTO [Concomitant]
     Active Substance: RIVAROXABAN

REACTIONS (1)
  - Rash [Not Recovered/Not Resolved]
